FAERS Safety Report 4410684-X (Version None)
Quarter: 2004Q3

REPORT INFORMATION
  Report Type: 
  Country: None (occurrence: None)
  Receive Date: 20040728
  Receipt Date: 20040713
  Transmission Date: 20050211
  Serious: Yes (Hospitalization)
  Sender: FDA-Public Use
  Company Number: 2004UW14392

PATIENT
  Age: 67 Year
  Sex: Female

DRUGS (2)
  1. CRESTOR [Suspect]
     Indication: BLOOD CHOLESTEROL INCREASED
     Dosage: 40 MG DAILY PO
     Route: 048
     Dates: start: 20040401
  2. PRILOSEC [Concomitant]

REACTIONS (4)
  - CONFUSIONAL STATE [None]
  - DIALYSIS [None]
  - FALL [None]
  - RHABDOMYOLYSIS [None]
